FAERS Safety Report 6600711-3 (Version None)
Quarter: 2010Q1

REPORT INFORMATION
  Report Type: 
  Country: None (occurrence: None)
  Receive Date: 20100223
  Receipt Date: 20100223
  Transmission Date: 20100710
  Serious: Yes (Other)
  Sender: FDA-Public Use
  Company Number: None

PATIENT
  Sex: Female
  Weight: 97.5234 kg

DRUGS (2)
  1. FENTANYL [Suspect]
     Indication: NERVE INJURY
     Dosage: 50 MG. 1 PATCH EVERY TWO DAYS EXTERNAL ON SKIN
     Dates: start: 20090101
  2. FENTANYL [Suspect]
     Indication: PAIN
     Dosage: 50 MG. 1 PATCH EVERY TWO DAYS EXTERNAL ON SKIN
     Dates: start: 20090101

REACTIONS (6)
  - ABDOMINAL DISCOMFORT [None]
  - ANXIETY [None]
  - CHILLS [None]
  - NERVOUSNESS [None]
  - PRODUCT SUBSTITUTION ISSUE [None]
  - WITHDRAWAL SYNDROME [None]
